FAERS Safety Report 6015170-1 (Version None)
Quarter: 2008Q4

REPORT INFORMATION
  Report Type: 
  Country: None (occurrence: None)
  Receive Date: 20081218
  Receipt Date: 20081205
  Transmission Date: 20090506
  Serious: Yes (Congenital Anomaly)
  Sender: FDA-Public Use
  Company Number: WAES 0812USA02279

PATIENT
  Sex: Female

DRUGS (1)
  1. ZOCOR [Suspect]

REACTIONS (4)
  - BICUSPID AORTIC VALVE [None]
  - CONGENITAL CORONARY ARTERY MALFORMATION [None]
  - MATERNAL DRUGS AFFECTING FOETUS [None]
  - PERSISTENT FOETAL CIRCULATION [None]
